FAERS Safety Report 14518642 (Version 2)
Quarter: 2018Q1

REPORT INFORMATION
  Report Type: Spontaneous
  Country: DE (occurrence: DE)
  Receive Date: 20180212
  Receipt Date: 20180330
  Transmission Date: 20180509
  Serious: Yes (Hospitalization)
  Sender: FDA-Public Use
  Company Number: DE-JNJFOC-20171219917

PATIENT
  Age: 32 Year
  Sex: Female
  Weight: 63 kg

DRUGS (2)
  1. PROMETHAZINE [Concomitant]
     Active Substance: PROMETHAZINE\PROMETHAZINE HYDROCHLORIDE
     Indication: TENSION
     Dosage: 0-0-1
     Route: 065
  2. XEPLION [Suspect]
     Active Substance: PALIPERIDONE PALMITATE
     Indication: SCHIZOPHRENIA
     Dosage: MAINTENANCE DOSE
     Route: 030
     Dates: start: 20171009, end: 20171215

REACTIONS (3)
  - Psychotic symptom [Unknown]
  - Antipsychotic drug level below therapeutic [Unknown]
  - Aggression [Unknown]

NARRATIVE: CASE EVENT DATE: 2017
